FAERS Safety Report 14571097 (Version 1)
Quarter: 2018Q1

REPORT INFORMATION
  Report Type: Report from Study
  Country: IL (occurrence: IL)
  Receive Date: 20180226
  Receipt Date: 20180226
  Transmission Date: 20180509
  Serious: Yes (Other)
  Sender: FDA-Public Use
  Company Number: IL-ACCORD-063657

PATIENT
  Age: 38 Year
  Sex: Female

DRUGS (5)
  1. CLOBAZAM [Interacting]
     Active Substance: CLOBAZAM
     Indication: SEIZURE
  2. TOPIRAMATE. [Interacting]
     Active Substance: TOPIRAMATE
     Indication: SEIZURE
  3. VALPROIC ACID. [Interacting]
     Active Substance: VALPROIC ACID
     Indication: SEIZURE
     Dosage: WITH INCREASING DOSES
  4. CARBAMAZEPINE. [Interacting]
     Active Substance: CARBAMAZEPINE
     Indication: SEIZURE
  5. LEVETIRACETAM. [Suspect]
     Active Substance: LEVETIRACETAM
     Indication: SEIZURE

REACTIONS (4)
  - Hepatic enzyme increased [Unknown]
  - Hyperammonaemia [Recovered/Resolved]
  - Drug interaction [Unknown]
  - Encephalopathy [Recovering/Resolving]
